FAERS Safety Report 8018759-3 (Version None)
Quarter: 2012Q1

REPORT INFORMATION
  Report Type: 
  Country: None (occurrence: None)
  Receive Date: 20120103
  Receipt Date: 20120103
  Transmission Date: 20120608
  Serious: Yes (Other)
  Sender: FDA-Public Use
  Company Number: None

PATIENT
  Age: 87 Year
  Sex: Male
  Weight: 67.585 kg

DRUGS (1)
  1. DIOVAN [Suspect]
     Indication: BLOOD PRESSURE INCREASED
     Dosage: 1 TABLET  80 MG
     Route: 048
     Dates: start: 20110916, end: 20111231

REACTIONS (4)
  - PAIN IN EXTREMITY [None]
  - DYSPHONIA [None]
  - DRUG HYPERSENSITIVITY [None]
  - INSOMNIA [None]
